FAERS Safety Report 18043539 (Version 1)
Quarter: 2020Q3

REPORT INFORMATION
  Report Type: Spontaneous
  Country: US (occurrence: US)
  Receive Date: 20200718
  Receipt Date: 20200718
  Transmission Date: 20201103
  Serious: Yes (Hospitalization)
  Sender: FDA-Public Use
  Company Number: None

PATIENT
  Age: 78 Year
  Sex: Female
  Weight: 39.1 kg

DRUGS (1)
  1. MEDI4736 (DURVALUMAB) [Suspect]
     Active Substance: DURVALUMAB
     Dates: end: 20200624

REACTIONS (3)
  - Cough [None]
  - Dyspnoea [None]
  - Pneumonitis [None]

NARRATIVE: CASE EVENT DATE: 20200630
